FAERS Safety Report 10067205 (Version 1)
Quarter: 2014Q2

REPORT INFORMATION
  Report Type: Spontaneous
  Country: US (occurrence: None)
  Receive Date: 20140407
  Receipt Date: 20140407
  Transmission Date: 20141212
  Serious: Yes (Death, Other)
  Sender: FDA-Public Use
  Company Number: 2014-19284

PATIENT
  Age: 74 Year
  Sex: Female
  Weight: 113.4 kg

DRUGS (1)
  1. EYLEA (AFLIBERCEPT) INJECTION)AFLIBERCEPT) [Suspect]
     Indication: MACULAR DEGENERATION
     Dates: start: 201309, end: 201310

REACTIONS (1)
  - Death [None]
